FAERS Safety Report 6983998-7 (Version None)
Quarter: 2010Q3

REPORT INFORMATION
  Report Type: 
  Country: None (occurrence: None)
  Receive Date: 20100915
  Receipt Date: 20090724
  Transmission Date: 20110219
  Serious: No
  Sender: FDA-Public Use
  Company Number: US-WYE-H09046809

PATIENT
  Sex: Male

DRUGS (6)
  1. PRISTIQ [Suspect]
     Route: 048
  2. TRAZODONE HCL [Concomitant]
  3. LUNESTA [Concomitant]
  4. RISPERDAL [Concomitant]
  5. ACCUPRIL [Concomitant]
  6. RANITIDINE [Concomitant]

REACTIONS (1)
  - DRUG SCREEN FALSE POSITIVE [None]
